FAERS Safety Report 15832029 (Version 1)
Quarter: 2019Q1

REPORT INFORMATION
  Report Type: Spontaneous
  Country: CN (occurrence: CN)
  Receive Date: 20190116
  Receipt Date: 20190116
  Transmission Date: 20190417
  Serious: Yes (Death)
  Sender: FDA-Public Use
  Company Number: CN-CORDEN PHARMA LATINA S.P.A.-CN-2019COR000007

PATIENT

DRUGS (3)
  1. ETOPOSIDE. [Suspect]
     Active Substance: ETOPOSIDE
     Indication: SMALL CELL LUNG CANCER
     Dosage: 60 MG/M2 ON DAYS 1-3 FOR 2 WEEKS, FOR 5 CYCLES
     Route: 042
  2. CISPLATIN. [Suspect]
     Active Substance: CISPLATIN
     Indication: SMALL CELL LUNG CANCER
     Dosage: 25 MG/M2 ON DAYS 1 AND 8, 2 WEEKS FOR 5 CYCLES
     Route: 042
  3. IRINOTECAN [Suspect]
     Active Substance: IRINOTECAN
     Indication: SMALL CELL LUNG CANCER
     Dosage: 90 MG/M2 ON DAY 8, 2 WEEKS FOR 5 CYCLES
     Route: 042

REACTIONS (2)
  - Lung infection [Fatal]
  - Febrile neutropenia [Fatal]
